FAERS Safety Report 5043969-7 (Version None)
Quarter: 2006Q3

REPORT INFORMATION
  Report Type: 
  Country: None (occurrence: None)
  Receive Date: 20060706
  Receipt Date: 20060629
  Transmission Date: 20061208
  Serious: Yes (Life-Threatening)
  Sender: FDA-Public Use
  Company Number: 2006AP02996

PATIENT
  Age: 21956 Day
  Sex: Male
  Weight: 86 kg

DRUGS (1)
  1. SEROQUEL [Suspect]
     Indication: MENTAL DISORDER
     Route: 048
     Dates: start: 20060621, end: 20060628

REACTIONS (3)
  - LACTIC ACIDOSIS [None]
  - SEPTIC SHOCK [None]
  - SHOCK [None]
